FAERS Safety Report 4620883-X (Version None)
Quarter: 2005Q1

REPORT INFORMATION
  Report Type: 
  Country: None (occurrence: None)
  Receive Date: 20050325
  Receipt Date: 20050317
  Transmission Date: 20050727
  Serious: No
  Sender: FDA-Public Use
  Company Number: 2005-126575-NL

PATIENT
  Age: 78 Year
  Sex: Female

DRUGS (27)
  1. ROCURONIUM [Suspect]
     Indication: INDUCTION AND MAINTENANCE OF ANAESTHESIA
     Dosage: 50 MG ONCE/30 MG ONCE,INTRAVENOUS BOLUS
     Route: 040
  2. PANCURONIUM [Suspect]
     Indication: MAINTENANCE OF ANAESTHESIA
     Dosage: INTRAVENOUS BOLUS
     Route: 040
  3. MIDAZOLAM HCL [Concomitant]
  4. SUFENTANIL CITRATE [Concomitant]
  5. SEVOFLURANE [Concomitant]
  6. ISOSORBIDE MONONITRATE [Concomitant]
  7. OMEPRAZOLE [Concomitant]
  8. NADOLOL [Concomitant]
  9. DILTIAZEM [Concomitant]
  10. ACETYL SALICYLIC ACID USP BAT [Concomitant]
  11. GLYCERYL TRINITRATE [Concomitant]
  12. CRYSTALLOID SOLUTION [Concomitant]
  13. PENTASTARCH [Concomitant]
  14. RED BLOOD CELLS [Concomitant]
  15. PLASMA PROTEIN FRACTION (HUMAN) [Concomitant]
  16. PLATELETS [Concomitant]
  17. PLATELETS [Concomitant]
  18. EPINEPHRINE [Concomitant]
  19. NOREPINEPHRINE [Concomitant]
  20. MILRINONE [Concomitant]
  21. MAGNESIUM SULPHATE PASTE [Concomitant]
  22. VANCOMYCIN [Concomitant]
  23. FUROSEMIDE [Concomitant]
  24. MANNITOL [Concomitant]
  25. APPROTININ [Concomitant]
  26. INSULIN [Concomitant]
  27. CALCIUM GLUCONATE [Concomitant]

REACTIONS (5)
  - ANAESTHETIC COMPLICATION NEUROLOGICAL [None]
  - AREFLEXIA [None]
  - COMA [None]
  - LOSS OF CONSCIOUSNESS [None]
  - PUPILLARY REFLEX IMPAIRED [None]
